FAERS Safety Report 23103657 (Version 1)
Quarter: 2023Q4

REPORT INFORMATION
  Report Type: Spontaneous
  Country: IN (occurrence: IN)
  Receive Date: 20231025
  Receipt Date: 20231025
  Transmission Date: 20240109
  Serious: Yes (Other)
  Sender: FDA-Public Use
  Company Number: IN-PFIZER INC-202300325542

PATIENT
  Sex: Male

DRUGS (1)
  1. DACOMITINIB [Suspect]
     Active Substance: DACOMITINIB
     Indication: Non-small cell lung cancer
     Dosage: 45 MG, 1X/DAY
     Dates: start: 20230819, end: 20230917

REACTIONS (3)
  - Ankle fracture [Unknown]
  - Nail bed bleeding [Unknown]
  - Rash [Unknown]

NARRATIVE: CASE EVENT DATE: 20230901
